FAERS Safety Report 4911997-5 (Version None)
Quarter: 2006Q1

REPORT INFORMATION
  Report Type: 
  Country: None (occurrence: None)
  Receive Date: 20060213
  Receipt Date: 20060131
  Transmission Date: 20060701
  Serious: Yes (Other)
  Sender: FDA-Public Use
  Company Number: 06-000102

PATIENT
  Age: 36 Year
  Sex: Male

DRUGS (1)
  1. DOVONEX [Suspect]
     Dosage: TOPICAL
     Route: 061

REACTIONS (4)
  - APPLICATION SITE ERYTHEMA [None]
  - PYREXIA [None]
  - SKIN EXFOLIATION [None]
  - SKIN HAEMORRHAGE [None]
